FAERS Safety Report 24641046 (Version 1)
Quarter: 2024Q4

REPORT INFORMATION
  Report Type: Spontaneous
  Country: US (occurrence: US)
  Receive Date: 20241120
  Receipt Date: 20241120
  Transmission Date: 20250114
  Serious: No
  Sender: AUROBINDO
  Company Number: US-AUROBINDO-AUR-APL-2024-017943

PATIENT
  Age: 75 Year
  Sex: Female
  Weight: 58.08 kg

DRUGS (1)
  1. PANTOPRAZOLE SODIUM [Suspect]
     Active Substance: PANTOPRAZOLE SODIUM
     Indication: Oesophageal ulcer
     Dosage: 2 DOSAGE FORM, DAILY
     Route: 065
     Dates: start: 20240325

REACTIONS (1)
  - Constipation [Unknown]
